FAERS Safety Report 10037429 (Version 1)
Quarter: 2014Q1

REPORT INFORMATION
  Report Type: Spontaneous
  Country: US (occurrence: US)
  Receive Date: 20140326
  Receipt Date: 20140326
  Transmission Date: 20141002
  Serious: Yes (Other)
  Sender: FDA-Public Use
  Company Number: US-UCBSA-114848

PATIENT
  Age: 24 Year
  Sex: Male

DRUGS (1)
  1. CIMZIA [Suspect]
     Indication: CROHN^S DISEASE
     Dates: start: 20090410

REACTIONS (8)
  - Cardiac flutter [Unknown]
  - Chest pain [Unknown]
  - Diarrhoea haemorrhagic [Unknown]
  - Weight decreased [Unknown]
  - Dysarthria [Unknown]
  - Nausea [Unknown]
  - Headache [Unknown]
  - Mood swings [Unknown]
